FAERS Safety Report 5342538-9 (Version None)
Quarter: 2007Q2

REPORT INFORMATION
  Report Type: 
  Country: None (occurrence: None)
  Receive Date: 20070601
  Receipt Date: 20070522
  Transmission Date: 20071010
  Serious: Yes (Other)
  Sender: FDA-Public Use
  Company Number: US-GENENTECH-222382

PATIENT
  Sex: Female
  Weight: 120 kg

DRUGS (9)
  1. RITUXIMAB [Suspect]
     Indication: SYSTEMIC LUPUS ERYTHEMATOSUS
     Dosage: 1 G, DAYS 1+15
     Route: 042
     Dates: start: 20050616, end: 20050630
  2. RITUXIMAB [Suspect]
     Dosage: 1000 MG, DAYS 1+15
     Dates: start: 20051201, end: 20051215
  3. PREDNISONE TAB [Concomitant]
     Indication: DRUG USE FOR UNKNOWN INDICATION
     Dosage: 5 MG, QD
     Dates: start: 20051202
  4. PREDNISONE TAB [Concomitant]
     Dosage: 40 MG, QD
  5. PREDNISONE TAB [Concomitant]
     Dosage: 30 MG, QD
  6. PREDNISONE TAB [Concomitant]
     Dosage: 20 MG, QD
  7. PREDNISONE TAB [Concomitant]
     Dosage: 7.5 MG, QD
  8. CELLCEPT [Concomitant]
     Indication: DRUG USE FOR UNKNOWN INDICATION
  9. IMURAN [Concomitant]
     Indication: DRUG USE FOR UNKNOWN INDICATION

REACTIONS (1)
  - LUPUS NEPHRITIS [None]
